FAERS Safety Report 5012483-7 (Version None)
Quarter: 2006Q2

REPORT INFORMATION
  Report Type: 
  Country: None (occurrence: None)
  Receive Date: 20060414
  Receipt Date: 20060113
  Transmission Date: 20061013
  Serious: No
  Sender: FDA-Public Use
  Company Number: 2006SP000235

PATIENT
  Age: 64 Year
  Sex: Female

DRUGS (5)
  1. LUNESTA [Suspect]
     Indication: INSOMNIA
     Dosage: 3 MG;HS;ORAL
     Route: 048
     Dates: start: 20060110
  2. LEXAPRO [Concomitant]
  3. XANAX [Concomitant]
  4. LISINOPRIL [Concomitant]
  5. NABUMETONE [Concomitant]

REACTIONS (4)
  - DRUG INEFFECTIVE [None]
  - FLUSHING [None]
  - INSOMNIA [None]
  - PARAESTHESIA [None]
